FAERS Safety Report 23831881 (Version 1)
Quarter: 2024Q2

REPORT INFORMATION
  Report Type: Spontaneous
  Country: US (occurrence: None)
  Receive Date: 20240507
  Receipt Date: 20240507
  Transmission Date: 20240716
  Serious: Yes (Hospitalization)
  Sender: FDA-Public Use
  Company Number: None

PATIENT
  Age: 31 Year
  Sex: Female
  Weight: 85.6 kg

DRUGS (8)
  1. OGSIVEO [Suspect]
     Active Substance: NIROGACESTAT HYDROBROMIDE
     Indication: Desmoid tumour
     Dosage: FREQUENCY : TWICE A DAY;?
     Route: 048
     Dates: start: 20240405, end: 20240417
  2. GABAPENTIN [Concomitant]
     Active Substance: GABAPENTIN
  3. ONDANSETRON [Concomitant]
     Active Substance: ONDANSETRON
  4. OXYCODONE [Concomitant]
     Active Substance: OXYCODONE\OXYCODONE HYDROCHLORIDE
  5. BUSPIRONE [Concomitant]
     Active Substance: BUSPIRONE HYDROCHLORIDE
  6. ETHINYL ESTRADIOL\NORGESTIMATE [Concomitant]
     Active Substance: ETHINYL ESTRADIOL\NORGESTIMATE
  7. LEVOTHYROXINE [Concomitant]
     Active Substance: LEVOTHYROXINE\LEVOTHYROXINE SODIUM
  8. METOPROLOL [Concomitant]
     Active Substance: METOPROLOL

REACTIONS (8)
  - Nausea [None]
  - Vomiting [None]
  - Rash pruritic [None]
  - Burning sensation [None]
  - Lip swelling [None]
  - Oral discomfort [None]
  - Mouth swelling [None]
  - Chills [None]

NARRATIVE: CASE EVENT DATE: 20240415
